FAERS Safety Report 7455447-6 (Version None)
Quarter: 2011Q2

REPORT INFORMATION
  Report Type: 
  Country: None (occurrence: None)
  Receive Date: 20110503
  Receipt Date: 20110428
  Transmission Date: 20111010
  Serious: Yes (Hospitalization, Disabling, Other)
  Sender: FDA-Public Use
  Company Number: US-ABBOTT-11P-163-0720229-00

PATIENT
  Sex: Female
  Weight: 127.12 kg

DRUGS (5)
  1. ALBUTEROL [Concomitant]
     Indication: PRODUCT USED FOR UNKNOWN INDICATION
     Route: 055
  2. UNKOWN PSORAISIS TOPICALS [Concomitant]
     Indication: PSORIASIS
     Route: 061
  3. HUMIRA [Suspect]
     Indication: PSORIASIS
     Route: 058
     Dates: start: 20110101
  4. HUMIRA [Suspect]
     Indication: PSORIATIC ARTHROPATHY
     Route: 058
     Dates: start: 20060601, end: 20090301
  5. LOVASTATIN [Concomitant]
     Indication: BLOOD CHOLESTEROL INCREASED
     Route: 048

REACTIONS (9)
  - SQUAMOUS CELL CARCINOMA OF SKIN [None]
  - BRONCHITIS [None]
  - RETINAL TEAR [None]
  - VISUAL IMPAIRMENT [None]
  - SKIN LESION [None]
  - OTORRHOEA [None]
  - MALAISE [None]
  - SKIN PAPILLOMA [None]
  - SQUAMOUS CELL CARCINOMA [None]
